FAERS Safety Report 6473372-4 (Version None)
Quarter: 2009Q4

REPORT INFORMATION
  Report Type: 
  Country: None (occurrence: None)
  Receive Date: 20091204
  Receipt Date: 20081230
  Transmission Date: 20100525
  Serious: Yes (Other)
  Sender: FDA-Public Use
  Company Number: US-ELI_LILLY_AND_COMPANY-US200811002859

PATIENT
  Sex: Female
  Weight: 64.626 kg

DRUGS (6)
  1. FORTEO [Suspect]
     Indication: OSTEOPOROSIS
     Dosage: 20 UG, DAILY (1/D)
     Dates: start: 20080313
  2. EVISTA [Concomitant]
     Dosage: 60 MG, DAILY (1/D)
     Route: 048
  3. VITAMIN D [Concomitant]
     Dosage: 50000 IU, WEEKLY (1/W)
  4. VITAMIN D [Concomitant]
     Dosage: 1000 IU, DAILY (1/D)
  5. CALCIUM [Concomitant]
     Dosage: UNK, 3/D
  6. CALCIUM WITH VITAMIN D [Concomitant]
     Dosage: 500 MG, 3/D

REACTIONS (1)
  - B-CELL SMALL LYMPHOCYTIC LYMPHOMA [None]
